FAERS Safety Report 7547053-X (Version None)
Quarter: 2011Q2

REPORT INFORMATION
  Report Type: 
  Country: None (occurrence: None)
  Receive Date: 20110524
  Receipt Date: 20110316
  Transmission Date: 20111010
  Serious: No
  Sender: FDA-Public Use
  Company Number: 027702

PATIENT
  Sex: Male
  Weight: 79.3795 kg

DRUGS (6)
  1. CIMZIA [Suspect]
  2. PENTASA [Concomitant]
  3. PREDNISONE [Suspect]
     Indication: CROHN'S DISEASE
     Dosage: (40 MG) ; (TAPERING OF THE DOSE)
     Dates: start: 20101116, end: 20101214
  4. CIMZIA [Suspect]
     Indication: CROHN'S DISEASE
     Dosage: (400 MG 1X/4 WEEKS SUBCUTANEOUS) ; (400 MG 1X/MONTH, DOSE FORM : LYOPHILIZED SUBCUTANEOUS)
     Route: 058
     Dates: start: 20090101
  5. CIMZIA [Suspect]
     Indication: CROHN'S DISEASE
     Dosage: (400 MG 1X/4 WEEKS SUBCUTANEOUS) ; (400 MG 1X/MONTH, DOSE FORM : LYOPHILIZED SUBCUTANEOUS)
     Route: 058
     Dates: start: 20080601
  6. VITAMIN B12 /00056201/ [Concomitant]

REACTIONS (5)
  - ANORECTAL DISCOMFORT [None]
  - INTESTINAL FUNCTIONAL DISORDER [None]
  - ABDOMINAL PAIN [None]
  - DIARRHOEA [None]
  - CROHN'S DISEASE [None]
